FAERS Safety Report 15750735 (Version 3)
Quarter: 2019Q1

REPORT INFORMATION
  Report Type: Report from Study
  Country: JP (occurrence: JP)
  Receive Date: 20181221
  Receipt Date: 20190121
  Transmission Date: 20190417
  Serious: Yes (Life-Threatening, Other)
  Sender: FDA-Public Use
  Company Number: JP-ASPEN-GLO2018JP012815

PATIENT
  Age: 8 Month
  Sex: Female

DRUGS (15)
  1. PREDNISONE. [Suspect]
     Active Substance: PREDNISONE
     Indication: BLASTIC PLASMACYTOID DENDRITIC CELL NEOPLASIA
     Dosage: GRADUAL TAPERING OF CORTICOSTEROID FOR THE TREATMENT OF CHRONIC GVHD
     Route: 065
  2. CYCLOPHOSPHAMIDE. [Concomitant]
     Active Substance: CYCLOPHOSPHAMIDE
     Indication: BLASTIC PLASMACYTOID DENDRITIC CELL NEOPLASIA
     Route: 065
  3. FLUDARABINE PHOSPHATE. [Concomitant]
     Active Substance: FLUDARABINE PHOSPHATE
     Indication: BLASTIC PLASMACYTOID DENDRITIC CELL NEOPLASIA
     Route: 065
  4. METHOTREXATE. [Concomitant]
     Active Substance: METHOTREXATE
     Indication: BLASTIC PLASMACYTOID DENDRITIC CELL NEOPLASIA
     Dosage: TIT?6
     Route: 037
  5. ETOPOSIDE. [Concomitant]
     Active Substance: ETOPOSIDE
     Indication: BLASTIC PLASMACYTOID DENDRITIC CELL NEOPLASIA
     Route: 065
  6. HYDROCORTISONE. [Suspect]
     Active Substance: HYDROCORTISONE
     Indication: BLASTIC PLASMACYTOID DENDRITIC CELL NEOPLASIA
     Dosage: 3656 MG/M2
     Route: 065
  7. PREDNISONE. [Suspect]
     Active Substance: PREDNISONE
     Indication: CHRONIC GRAFT VERSUS HOST DISEASE
     Dosage: 2373 MG/M2, HIGH-DOSE
     Route: 065
  8. METHYLPREDNISOLONE. [Suspect]
     Active Substance: METHYLPREDNISOLONE
     Indication: BLASTIC PLASMACYTOID DENDRITIC CELL NEOPLASIA
     Dosage: HIGH-DOSE
     Route: 065
  9. METHOTREXATE. [Concomitant]
     Active Substance: METHOTREXATE
     Indication: PROPHYLAXIS
  10. DEXAMETHASONE. [Suspect]
     Active Substance: DEXAMETHASONE
     Indication: BLASTIC PLASMACYTOID DENDRITIC CELL NEOPLASIA
     Dosage: HIGH-DOSE
     Route: 065
  11. HYDROCORTISONE. [Suspect]
     Active Substance: HYDROCORTISONE
     Indication: PROPHYLAXIS
     Dosage: TIT?6
     Route: 037
  12. MELPHALAN. [Concomitant]
     Active Substance: MELPHALAN
     Indication: BLASTIC PLASMACYTOID DENDRITIC CELL NEOPLASIA
     Route: 065
  13. CYTARABINE. [Concomitant]
     Active Substance: CYTARABINE
     Indication: BLASTIC PLASMACYTOID DENDRITIC CELL NEOPLASIA
     Dosage: TIT?6
     Route: 037
  14. CYTARABINE. [Concomitant]
     Active Substance: CYTARABINE
     Indication: PROPHYLAXIS
  15. BUSULFAN. [Concomitant]
     Active Substance: BUSULFAN
     Indication: BLASTIC PLASMACYTOID DENDRITIC CELL NEOPLASIA
     Route: 065

REACTIONS (9)
  - Adrenocortical insufficiency acute [Recovering/Resolving]
  - Viral infection [Unknown]
  - Hypoglycaemia [Unknown]
  - Body height below normal [Unknown]
  - Adrenal suppression [Recovering/Resolving]
  - Hypothalamo-pituitary disorder [Recovering/Resolving]
  - Status epilepticus [Recovering/Resolving]
  - Adrenal insufficiency [Recovering/Resolving]
  - Hyponatraemia [Unknown]
